FAERS Safety Report 10791361 (Version 1)
Quarter: 2015Q1

REPORT INFORMATION
  Report Type: Spontaneous
  Country: BR (occurrence: BR)
  Receive Date: 20150213
  Receipt Date: 20150213
  Transmission Date: 20150721
  Serious: Yes (Death, Other)
  Sender: FDA-Public Use
  Company Number: BR-AMGEN-BRASP2015013144

PATIENT
  Sex: Male
  Weight: 56 kg

DRUGS (1)
  1. ENBREL [Suspect]
     Active Substance: ETANERCEPT
     Indication: PSORIASIS
     Dosage: 50 MG, 1X/WEEK
     Route: 065
     Dates: start: 2008

REACTIONS (3)
  - Senile dementia [Fatal]
  - Acute respiratory failure [Fatal]
  - Dehydration [Fatal]
